FAERS Safety Report 5164735-8 (Version None)
Quarter: 2006Q4

REPORT INFORMATION
  Report Type: 
  Country: None (occurrence: None)
  Receive Date: 20061205
  Receipt Date: 20010228
  Transmission Date: 20070319
  Serious: Yes (Hospitalization)
  Sender: FDA-Public Use
  Company Number: FR-GLAXOSMITHKLINE-B0100472A

PATIENT
  Sex: Male
  Weight: 1.9 kg

DRUGS (8)
  1. RETROVIR [Suspect]
     Indication: ANTIVIRAL PROPHYLAXIS
     Route: 042
     Dates: start: 19991017, end: 19991023
  2. ZIDOVUDINE [Suspect]
     Indication: ANTIVIRAL PROPHYLAXIS
     Route: 048
     Dates: start: 19991024
  3. VIRAMUNE [Suspect]
     Indication: ANTIVIRAL PROPHYLAXIS
     Dosage: 1UNIT PER DAY
     Route: 048
     Dates: start: 19991018, end: 19991018
  4. VIDEX [Suspect]
     Indication: HIV INFECTION
     Route: 048
  5. VIRAMUNE [Suspect]
     Indication: HIV INFECTION
     Route: 048
  6. SAQUINAVIR [Suspect]
     Indication: HIV INFECTION
     Route: 048
  7. RITONAVIR [Suspect]
     Indication: HIV INFECTION
     Route: 048
  8. CLAMOXYL [Concomitant]

REACTIONS (7)
  - ANAEMIA [None]
  - ANAEMIA NEONATAL [None]
  - DRUG EXPOSURE DURING PREGNANCY [None]
  - FEEDING DISORDER OF INFANCY OR EARLY CHILDHOOD [None]
  - PREMATURE BABY [None]
  - REGURGITATION OF FOOD [None]
  - SICKLE CELL ANAEMIA [None]
